FAERS Safety Report 23142333 (Version 1)
Quarter: 2023Q4

REPORT INFORMATION
  Report Type: Spontaneous
  Country: US (occurrence: US)
  Receive Date: 20231103
  Receipt Date: 20231103
  Transmission Date: 20240109
  Serious: No
  Sender: FDA-Public Use
  Company Number: US-ALEMBIC PHARMACUETICALS LIMITED-2023SCAL001005

PATIENT

DRUGS (1)
  1. FLUOROURACIL [Suspect]
     Active Substance: FLUOROURACIL
     Indication: Product used for unknown indication
     Dosage: UNK
     Route: 065

REACTIONS (6)
  - Pruritus [Unknown]
  - Nasal discomfort [Unknown]
  - Throat irritation [Unknown]
  - Eye irritation [Unknown]
  - Product quality issue [Unknown]
  - Accidental exposure to product [Unknown]
